FAERS Safety Report 8860389 (Version 2)
Quarter: 2013Q4

REPORT INFORMATION
  Report Type: Spontaneous
  Country: US (occurrence: US)
  Receive Date: 20121025
  Receipt Date: 20131024
  Transmission Date: 20140711
  Serious: Yes (Other)
  Sender: FDA-Public Use
  Company Number: US-JNJFOC-20121008257

PATIENT
  Sex: Female
  Weight: 81.65 kg

DRUGS (12)
  1. SANDOZ FENTANYL TRANSDERMAL SYSTEM [Suspect]
     Indication: PAIN
     Route: 062
     Dates: start: 201204
  2. UNSPECIFIED FENTANYL TRANSDERMAL SYTEM [Suspect]
     Indication: PAIN
     Route: 062
     Dates: end: 201204
  3. DURAGESIC [Suspect]
     Indication: PAIN
     Route: 062
     Dates: start: 2004
  4. DURAGESIC [Suspect]
     Indication: PAIN
     Route: 062
     Dates: start: 2002, end: 2002
  5. DURAGESIC [Suspect]
     Indication: PAIN
     Route: 062
     Dates: start: 2002, end: 2002
  6. DURAGESIC [Suspect]
     Indication: PAIN
     Route: 062
     Dates: start: 2002, end: 2002
  7. CALCIUM TABLETS [Concomitant]
     Indication: PARATHYROID DISORDER
     Route: 048
     Dates: start: 1999
  8. UNSPECIFED MEDICATIONS [Concomitant]
     Indication: BREAKTHROUGH PAIN
     Route: 048
     Dates: end: 2011
  9. CALCITRIOL [Concomitant]
     Indication: PARATHYROID DISORDER
     Route: 048
     Dates: start: 1999
  10. OXYCODONE [Concomitant]
     Indication: BREAKTHROUGH PAIN
     Dosage: 5-325 MG AS NECESSARY
     Route: 048
     Dates: start: 2011
  11. ARMOUR THYROID [Concomitant]
     Indication: THYROID DISORDER
     Route: 048
     Dates: start: 1975
  12. ALBUTEROL [Concomitant]
     Indication: ASTHMA
     Route: 055

REACTIONS (5)
  - Drug ineffective [Not Recovered/Not Resolved]
  - Fibromyalgia [Not Recovered/Not Resolved]
  - Blood pressure fluctuation [Not Recovered/Not Resolved]
  - Wrong technique in drug usage process [Unknown]
  - Product quality issue [Unknown]
